FAERS Safety Report 7586043-8 (Version None)
Quarter: 2011Q2

REPORT INFORMATION
  Report Type: 
  Country: None (occurrence: None)
  Receive Date: 20110629
  Receipt Date: 20110629
  Transmission Date: 20111010
  Serious: Yes (Hospitalization, Other)
  Sender: FDA-Public Use
  Company Number: None

PATIENT
  Age: 31 Year
  Sex: Female
  Weight: 65.7716 kg

DRUGS (1)
  1. CELEBREX [Suspect]
     Indication: RHEUMATOID ARTHRITIS
     Dosage: 200 MG 1 PER DAY PO
     Route: 048
     Dates: start: 20110625, end: 20110625

REACTIONS (7)
  - DIZZINESS [None]
  - SENSATION OF HEAVINESS [None]
  - MUSCLE SPASMS [None]
  - NAUSEA [None]
  - CARDIAC DISORDER [None]
  - FEELING ABNORMAL [None]
  - BLEPHAROSPASM [None]
